FAERS Safety Report 4829946-7 (Version None)
Quarter: 2005Q4

REPORT INFORMATION
  Report Type: 
  Country: None (occurrence: None)
  Receive Date: 20051115
  Receipt Date: 20051115
  Transmission Date: 20060501
  Serious: Yes (Hospitalization)
  Sender: FDA-Public Use
  Company Number: None

PATIENT
  Age: 84 Year
  Sex: Male
  Weight: 82.7 kg

DRUGS (15)
  1. PRAZOSIN HCL [Suspect]
     Indication: HYPERTENSION
     Dosage: 1 CAP PO QHS
     Route: 048
     Dates: start: 20050803
  2. ISOSORBIDE MONONITRATE [Suspect]
     Indication: CARDIAC FAILURE CONGESTIVE
     Dosage: 1 TAB PO Q DAILY
     Route: 048
     Dates: start: 20040108
  3. ISOSORBIDE MONONITRATE [Suspect]
     Indication: CORONARY ARTERY DISEASE
     Dosage: 1 TAB PO Q DAILY
     Route: 048
     Dates: start: 20040108
  4. CYANOCOBALAMIN [Concomitant]
  5. ATENOLOL [Concomitant]
  6. NITROGLYCERIN [Concomitant]
  7. DONEPEZIL HCL [Concomitant]
  8. FLUNISOLIDE [Concomitant]
  9. ALLOPURINOL [Concomitant]
  10. SIMVASTATIN [Concomitant]
  11. DOCUSATE NA [Concomitant]
  12. LISINOPRIL [Concomitant]
  13. ACETAMINOPHEN [Concomitant]
  14. OLANZAPINE [Concomitant]
  15. NORTRIPTYLINE HCL [Concomitant]

REACTIONS (6)
  - CHEST PAIN [None]
  - FALL [None]
  - LOSS OF CONSCIOUSNESS [None]
  - MAJOR DEPRESSION [None]
  - SKIN LACERATION [None]
  - SYNCOPE [None]
